FAERS Safety Report 18407711 (Version 3)
Quarter: 2020Q4

REPORT INFORMATION
  Report Type: Report from Study
  Country: AU (occurrence: AU)
  Receive Date: 20201020
  Receipt Date: 20201118
  Transmission Date: 20210114
  Serious: Yes (Hospitalization)
  Sender: FDA-Public Use
  Company Number: AU-REGENERON PHARMACEUTICALS, INC.-2020-81432

PATIENT

DRUGS (9)
  1. RP1 [Suspect]
     Active Substance: SERINE/THREONINE-PROTEIN KINASE 19
     Indication: SQUAMOUS CELL CARCINOMA
     Dosage: 1 X 10 ^6 PFU/ML (1 IN 3 WK)
     Route: 036
     Dates: start: 20200630, end: 20200630
  2. ENDONE [Concomitant]
     Active Substance: OXYCODONE HYDROCHLORIDE
     Indication: PROPHYLAXIS
     Dosage: 2.5 MG, AS REQUIRED
     Route: 048
     Dates: start: 20200802
  3. NOTEN [Concomitant]
     Active Substance: ATENOLOL
     Indication: HYPERTENSION
     Dosage: 25 MG, 1 IN 1 D
     Route: 048
     Dates: start: 20200630
  4. SODIUM CHLORIDE 0.9% [Concomitant]
     Active Substance: SODIUM CHLORIDE
     Indication: RENAL IMPAIRMENT
     Dosage: 500 ML
     Route: 042
     Dates: start: 20200922
  5. NOTEN [Concomitant]
     Active Substance: ATENOLOL
     Indication: BRADYCARDIA
  6. RP1 [Suspect]
     Active Substance: SERINE/THREONINE-PROTEIN KINASE 19
     Dosage: 1 X 10 ^7 PFU/ML (1 IN 3 WK)
     Route: 036
     Dates: start: 20200922
  7. CEMIPLIMAB [Suspect]
     Active Substance: CEMIPLIMAB
     Indication: SQUAMOUS CELL CARCINOMA
     Dosage: 350 MG, Q3W
     Route: 042
     Dates: start: 20200721
  8. ASPIRIN                            /00002701/ [Concomitant]
     Active Substance: ASPIRIN
     Indication: HYPERTENSION
     Dosage: 100 MG, 1 IN 1 D
     Route: 048
     Dates: start: 2009
  9. PROGOUT [Concomitant]
     Active Substance: ALLOPURINOL
     Indication: GOUT
     Dosage: 300 MG, 1 IN 1 D
     Route: 048
     Dates: start: 2009

REACTIONS (2)
  - Aortic stenosis [Recovered/Resolved with Sequelae]
  - Coronary artery occlusion [Recovered/Resolved with Sequelae]

NARRATIVE: CASE EVENT DATE: 20201002
